FAERS Safety Report 25196429 (Version 1)
Quarter: 2025Q2

REPORT INFORMATION
  Report Type: Spontaneous
  Country: IN (occurrence: IN)
  Receive Date: 20250415
  Receipt Date: 20250415
  Transmission Date: 20250717
  Serious: Yes (Other)
  Sender: UNICHEM
  Company Number: IN-UNICHEM LABORATORIES LIMITED-UNI-2025-IN-001851

PATIENT

DRUGS (1)
  1. TOPIRAMATE [Suspect]
     Active Substance: TOPIRAMATE
     Indication: Headache
     Route: 065

REACTIONS (4)
  - Toxicity to various agents [Unknown]
  - Angle closure glaucoma [Recovering/Resolving]
  - Acute myopia [Recovering/Resolving]
  - Retinal disorder [Recovering/Resolving]
